FAERS Safety Report 14636447 (Version 1)
Quarter: 2018Q1

REPORT INFORMATION
  Report Type: Spontaneous
  Country: BR (occurrence: BR)
  Receive Date: 20180314
  Receipt Date: 20180314
  Transmission Date: 20180509
  Serious: Yes (Hospitalization)
  Sender: FDA-Public Use
  Company Number: BR-JNJFOC-20180309046

PATIENT
  Age: 36 Year
  Sex: Female

DRUGS (4)
  1. ADEMPAS [Suspect]
     Active Substance: RIOCIGUAT
     Indication: PULMONARY HYPERTENSION
     Route: 048
     Dates: start: 20180212, end: 20180225
  2. SILDENAFIL. [Suspect]
     Active Substance: SILDENAFIL
     Indication: PRODUCT USED FOR UNKNOWN INDICATION
     Route: 065
  3. ADEMPAS [Suspect]
     Active Substance: RIOCIGUAT
     Indication: PULMONARY HYPERTENSION
     Route: 048
     Dates: start: 20180226
  4. XARELTO [Suspect]
     Active Substance: RIVAROXABAN
     Indication: PRODUCT USED FOR UNKNOWN INDICATION
     Route: 048

REACTIONS (14)
  - Abdominal pain upper [Unknown]
  - Fatigue [Unknown]
  - Dark circles under eyes [Unknown]
  - Eyelid oedema [Unknown]
  - Musculoskeletal pain [Unknown]
  - Blood pressure abnormal [Unknown]
  - Nausea [Unknown]
  - Headache [Not Recovered/Not Resolved]
  - Malaise [Unknown]
  - Salivary hypersecretion [Unknown]
  - Heart rate increased [Unknown]
  - Adverse event [Unknown]
  - Neck pain [Unknown]
  - Heart rate irregular [Unknown]

NARRATIVE: CASE EVENT DATE: 20180212
